FAERS Safety Report 24123158 (Version 1)
Quarter: 2024Q3

REPORT INFORMATION
  Report Type: Spontaneous
  Country: US (occurrence: US)
  Receive Date: 20240723
  Receipt Date: 20240723
  Transmission Date: 20241017
  Serious: No
  Sender: OTSUKA
  Company Number: US-OTSUKA-2023_020598

PATIENT
  Age: 69 Year
  Sex: Female

DRUGS (2)
  1. REXULTI [Suspect]
     Active Substance: BREXPIPRAZOLE
     Indication: Major depression
     Dosage: 1 MG, QD
     Route: 065
     Dates: start: 202211
  2. REXULTI [Suspect]
     Active Substance: BREXPIPRAZOLE
     Indication: Generalised anxiety disorder

REACTIONS (2)
  - Depression [Unknown]
  - Product use in unapproved indication [Unknown]

NARRATIVE: CASE EVENT DATE: 20221101
